FAERS Safety Report 9315720 (Version 1)
Quarter: 2013Q2

REPORT INFORMATION
  Report Type: Spontaneous
  Country: ES (occurrence: ES)
  Receive Date: 20130529
  Receipt Date: 20130529
  Transmission Date: 20140414
  Serious: Yes (Hospitalization, Other)
  Sender: FDA-Public Use
  Company Number: PHHY2013ES053589

PATIENT
  Age: 69 Year
  Sex: Female

DRUGS (1)
  1. TRAMADOL [Suspect]
     Indication: ANALGESIC THERAPY

REACTIONS (3)
  - Hallucination, auditory [Recovered/Resolved]
  - Hypoacusis [Recovered/Resolved]
  - Drug abuse [Unknown]
